FAERS Safety Report 13406892 (Version 3)
Quarter: 2017Q4

REPORT INFORMATION
  Report Type: Spontaneous
  Country: JP (occurrence: JP)
  Receive Date: 20170405
  Receipt Date: 20171211
  Transmission Date: 20180320
  Serious: Yes (Hospitalization)
  Sender: FDA-Public Use
  Company Number: JP-PFIZER INC-2017137355

PATIENT
  Age: 83 Year
  Sex: Male

DRUGS (3)
  1. LYRICA [Suspect]
     Active Substance: PREGABALIN
     Indication: POST HERPETIC NEURALGIA
     Dosage: 150 MG, 2X/DAY
     Route: 048
     Dates: start: 20161115, end: 20161118
  2. TRYPTANOL [Concomitant]
     Active Substance: AMITRIPTYLINE
     Dosage: UNK
     Route: 048
  3. SARPOGRELATE [Concomitant]
     Active Substance: SARPOGRELATE
     Dosage: UNK
     Route: 048

REACTIONS (3)
  - Feeling abnormal [Unknown]
  - Myoclonic epilepsy [Recovered/Resolved]
  - Dizziness [Unknown]

NARRATIVE: CASE EVENT DATE: 20161116
